FAERS Safety Report 7917107-4 (Version None)
Quarter: 2011Q4

REPORT INFORMATION
  Report Type: 
  Country: None (occurrence: None)
  Receive Date: 20111116
  Receipt Date: 20111109
  Transmission Date: 20120403
  Serious: Yes (Life-Threatening, Hospitalization)
  Sender: FDA-Public Use
  Company Number: CA-BAYER-2011-085966

PATIENT
  Age: 49 Year
  Sex: Female

DRUGS (4)
  1. SERTRALINE HYDROCHLORIDE [Concomitant]
     Dosage: 10 MG, TID
     Route: 048
  2. NAPROXEN (ALEVE) [Suspect]
     Indication: PAIN IN EXTREMITY
     Dosage: UNK
     Dates: start: 20110531, end: 20110531
  3. NEXIUM [Concomitant]
     Dosage: DAILY DOSE 40 MG
     Route: 048
  4. DOMPERIDONE [Concomitant]
     Dosage: DAILY DOSE 50 MG
     Route: 048

REACTIONS (4)
  - ANAPHYLACTIC REACTION [None]
  - OEDEMA [None]
  - PAIN IN EXTREMITY [None]
  - DYSPNOEA [None]
